FAERS Safety Report 5723074-4 (Version None)
Quarter: 2008Q2

REPORT INFORMATION
  Report Type: 
  Country: None (occurrence: None)
  Receive Date: 20080428
  Receipt Date: 20080428
  Transmission Date: 20081010
  Serious: Yes (Hospitalization)
  Sender: FDA-Public Use
  Company Number: None

PATIENT
  Age: 59 Year
  Sex: Male
  Weight: 99.34 kg

DRUGS (1)
  1. AMOXICILLIN [Suspect]
     Indication: PNEUMONIA
     Dosage: 500 MG TID PO
     Route: 048
     Dates: start: 20080325, end: 20080407

REACTIONS (9)
  - DRUG ERUPTION [None]
  - ECCHYMOSIS [None]
  - MUCOSAL DISCOLOURATION [None]
  - OEDEMA PERIPHERAL [None]
  - ORAL CANDIDIASIS [None]
  - RASH [None]
  - SPLEEN PALPABLE [None]
  - THROMBOSIS [None]
  - TONGUE BLACK HAIRY [None]
